FAERS Safety Report 16441301 (Version 1)
Quarter: 2019Q2

REPORT INFORMATION
  Report Type: Spontaneous
  Country: US (occurrence: US)
  Receive Date: 20190617
  Receipt Date: 20190617
  Transmission Date: 20190711
  Serious: No
  Sender: FDA-Public Use
  Company Number: US-PFIZER INC-2019252047

PATIENT
  Age: 75 Year
  Sex: Female
  Weight: 73.94 kg

DRUGS (1)
  1. XANAX [Suspect]
     Active Substance: ALPRAZOLAM
     Dosage: 0.5 MG, 1X/DAY (AT NIGHT)

REACTIONS (1)
  - Therapeutic product effect incomplete [Unknown]
